FAERS Safety Report 24360673 (Version 1)
Quarter: 2024Q3

REPORT INFORMATION
  Report Type: Spontaneous
  Country: US (occurrence: US)
  Receive Date: 20240925
  Receipt Date: 20240925
  Transmission Date: 20241016
  Serious: No
  Sender: JOHNSON AND JOHNSON
  Company Number: US-VIIV HEALTHCARE LIMITED-US2024AMR115234

PATIENT
  Age: 67 Year
  Sex: Male

DRUGS (2)
  1. RILPIVIRINE [Suspect]
     Active Substance: RILPIVIRINE
     Indication: HIV infection
     Dosage: UNK UNK, Q2M (INJECT 600-900 MG, 2 INJECTIONS EVERY 2 MONTHS)
     Route: 030
  2. CABOTEGRAVIR [Suspect]
     Active Substance: CABOTEGRAVIR
     Indication: HIV infection
     Dosage: UNK UNK, Q2M (INJECT 600-900 MG, 2 INJECTIONS EVERY 2 MONTHS)
     Route: 030

REACTIONS (1)
  - Drug ineffective [Not Recovered/Not Resolved]
